FAERS Safety Report 15392566 (Version 5)
Quarter: 2020Q1

REPORT INFORMATION
  Report Type: Spontaneous
  Country: CA (occurrence: CA)
  Receive Date: 20180917
  Receipt Date: 20200218
  Transmission Date: 20200409
  Serious: Yes (Other)
  Sender: FDA-Public Use
  Company Number: CA-PFIZER INC-2017021850

PATIENT
  Age: 15 Year
  Sex: Male
  Weight: 64.3 kg

DRUGS (6)
  1. EPURIS [Concomitant]
     Active Substance: ISOTRETINOIN
     Indication: ACNE
     Dosage: 20 MG, UNK
  2. ALVESCO [Concomitant]
     Active Substance: CICLESONIDE
  3. PERICHLOR [Concomitant]
     Route: 048
  4. VENTOLINE [SALBUTAMOL] [Concomitant]
     Active Substance: ALBUTEROL SULFATE
  5. RAPAMUNE [Suspect]
     Active Substance: SIROLIMUS
     Dosage: 1 MG, 2X/DAY
     Route: 048
     Dates: start: 201410, end: 201705
  6. RAPAMUNE [Suspect]
     Active Substance: SIROLIMUS
     Dosage: 1 MG, 2X/DAY
     Route: 048
     Dates: start: 201808

REACTIONS (9)
  - Beta haemolytic streptococcal infection [Unknown]
  - Weight decreased [Recovered/Resolved]
  - Tongue blistering [Unknown]
  - Lip swelling [Unknown]
  - Acne [Unknown]
  - Blood pressure increased [Unknown]
  - Hypersensitivity [Unknown]
  - Oral mucosal blistering [Unknown]
  - Pyrexia [Recovered/Resolved]

NARRATIVE: CASE EVENT DATE: 201704
